FAERS Safety Report 6440547-X (Version None)
Quarter: 2009Q4

REPORT INFORMATION
  Report Type: 
  Country: None (occurrence: None)
  Receive Date: 20091113
  Receipt Date: 20091103
  Transmission Date: 20100525
  Serious: Yes (Hospitalization, Other)
  Sender: FDA-Public Use
  Company Number: US-ELI_LILLY_AND_COMPANY-US200911000654

PATIENT
  Sex: Female

DRUGS (11)
  1. FORTEO [Suspect]
     Dosage: UNK, UNK
     Dates: start: 20080101, end: 20090101
  2. PLAVIX [Concomitant]
  3. NAMENDA [Concomitant]
  4. NEXIUM [Concomitant]
  5. LIPITOR [Concomitant]
  6. NORVASK [Concomitant]
  7. TOPROL-XL [Concomitant]
  8. IMDUR [Concomitant]
  9. CALCIUM [Concomitant]
  10. FOLIC ACID [Concomitant]
  11. MULTI-VITAMIN [Concomitant]

REACTIONS (5)
  - ARTERIOSCLEROSIS [None]
  - FLANK PAIN [None]
  - INJECTION SITE PAIN [None]
  - PANCREATIC NEOPLASM [None]
  - RENAL CELL CARCINOMA STAGE II [None]
